FAERS Safety Report 7711738-2 (Version None)
Quarter: 2011Q3

REPORT INFORMATION
  Report Type: 
  Country: None (occurrence: None)
  Receive Date: 20110826
  Receipt Date: 20110823
  Transmission Date: 20111222
  Serious: Yes (Hospitalization)
  Sender: FDA-Public Use
  Company Number: US-AMGEN-USASP2011042884

PATIENT
  Age: 49 Year
  Sex: Female

DRUGS (5)
  1. PEGFILGRASTIM [Suspect]
     Indication: BREAST CANCER
     Dosage: 24 MG, UNK
     Route: 042
     Dates: start: 20091023
  2. AVASTIN [Suspect]
     Indication: BREAST CANCER
     Dosage: 5898 MG, UNK
     Route: 042
     Dates: start: 20091023
  3. CYCLOPHOSPHAMIDE [Suspect]
     Indication: BREAST CANCER
     Dosage: 4020 MG, UNK
     Route: 042
     Dates: start: 20091023
  4. DOXORUBICIN HCL [Suspect]
     Indication: BREAST CANCER
     Dosage: 402 MG, UNK
     Route: 042
     Dates: start: 20091023
  5. PACLITAXEL [Suspect]
     Indication: BREAST CANCER
     Dosage: 1587 MG, UNK
     Route: 042
     Dates: start: 20091023

REACTIONS (1)
  - NEOPLASM MALIGNANT [None]
